FAERS Safety Report 22322141 (Version 1)
Quarter: 2023Q2

REPORT INFORMATION
  Report Type: Spontaneous
  Country: US (occurrence: None)
  Receive Date: 20230516
  Receipt Date: 20230516
  Transmission Date: 20230722
  Serious: No
  Sender: FDA-Public Use
  Company Number: US-Hikma Pharmaceuticals USA Inc.-US-H14001-23-00892

PATIENT
  Sex: Female

DRUGS (1)
  1. PREDNISONE [Suspect]
     Active Substance: PREDNISONE
     Indication: Product used for unknown indication
     Dosage: UNKNOWN
     Route: 065

REACTIONS (8)
  - Confusional state [Unknown]
  - Disturbance in attention [Unknown]
  - Fatigue [Unknown]
  - Blood glucose increased [Unknown]
  - Visual impairment [Unknown]
  - Swelling [Unknown]
  - Blood pressure increased [Unknown]
  - Adverse event [Unknown]
